FAERS Safety Report 25330034 (Version 1)
Quarter: 2025Q2

REPORT INFORMATION
  Report Type: Spontaneous
  Country: US (occurrence: US)
  Receive Date: 20250519
  Receipt Date: 20250519
  Transmission Date: 20250716
  Serious: No
  Sender: ROCHE
  Company Number: US-ROCHE-10000281849

PATIENT
  Sex: Male
  Weight: 127 kg

DRUGS (7)
  1. XOLAIR [Suspect]
     Active Substance: OMALIZUMAB
     Indication: Urticaria
     Dosage: (1) 150MG PFS AND (1) 300MG PFS ONCE EVERY 3 WEEKS
     Route: 058
     Dates: start: 2025
  2. XOLAIR [Suspect]
     Active Substance: OMALIZUMAB
     Indication: Asthma
     Dosage: INJECT 300MG PFS EVERY 3 WEEKS, SUBCUTANEOUS
     Route: 058
     Dates: start: 2024
  3. XOLAIR [Suspect]
     Active Substance: OMALIZUMAB
     Dosage: INJECT 150MG PFS 1 TIME PER MONTH, SUBCUTANEOUS
     Route: 058
     Dates: start: 2022
  4. CETIRIZINE [Concomitant]
     Active Substance: CETIRIZINE HYDROCHLORIDE
     Indication: Hypersensitivity
     Dosage: 10MG IN MORNING, 10MG IN EVENING
     Route: 048
     Dates: start: 202106
  5. CETIRIZINE [Concomitant]
     Active Substance: CETIRIZINE HYDROCHLORIDE
     Indication: Urticaria
  6. LEVOCETIRIZINE [Concomitant]
     Active Substance: LEVOCETIRIZINE
     Indication: Hypersensitivity
     Dosage: 5MG IN MORNING, 5 MG IN EVENING
     Route: 048
     Dates: start: 202106
  7. LEVOCETIRIZINE [Concomitant]
     Active Substance: LEVOCETIRIZINE
     Indication: Urticaria

REACTIONS (4)
  - Urticaria [Not Recovered/Not Resolved]
  - Off label use [Unknown]
  - Needle issue [Unknown]
  - Underdose [Unknown]

NARRATIVE: CASE EVENT DATE: 20250504
